FAERS Safety Report 4337638-6 (Version None)
Quarter: 2004Q2

REPORT INFORMATION
  Report Type: 
  Country: None (occurrence: None)
  Receive Date: 20040407
  Receipt Date: 20040324
  Transmission Date: 20050107
  Serious: Yes (Hospitalization)
  Sender: FDA-Public Use
  Company Number: CA-JNJFOC-20040304654

PATIENT
  Age: 39 Year
  Sex: Female

DRUGS (9)
  1. INFLIXIMAB, RECOMBINANT- BLINDED (INFLIXIMAB, RECOMBINANT) LYOPHILIZED [Suspect]
     Indication: PSORIASIS
     Dosage: SEE IMAGE
     Route: 042
     Dates: start: 20031230
  2. INFLIXIMAB, RECOMBINANT- BLINDED (INFLIXIMAB, RECOMBINANT) LYOPHILIZED [Suspect]
     Indication: PSORIASIS
     Dosage: SEE IMAGE
     Route: 042
     Dates: start: 20040114
  3. INFLIXIMAB, RECOMBINANT- BLINDED (INFLIXIMAB, RECOMBINANT) LYOPHILIZED [Suspect]
     Indication: PSORIASIS
     Dosage: SEE IMAGE
     Route: 042
     Dates: start: 20040220
  4. PLACEBO (PLACEBO) LYOPHILIXED POWDER [Suspect]
     Indication: PSORIASIS
     Dosage: SEE IMAGE
     Route: 042
     Dates: start: 20031230
  5. PLACEBO (PLACEBO) LYOPHILIXED POWDER [Suspect]
     Indication: PSORIASIS
     Dosage: SEE IMAGE
     Route: 042
     Dates: start: 20040114
  6. PLACEBO (PLACEBO) LYOPHILIXED POWDER [Suspect]
     Indication: PSORIASIS
     Dosage: SEE IMAGE
     Route: 042
     Dates: start: 20040220
  7. TRAZODONE HCL [Concomitant]
  8. HYDROCHLOROTHIAZIDE [Concomitant]
  9. CETAPHIL (CETAPHIL) [Concomitant]

REACTIONS (3)
  - ERYTHEMA [None]
  - PRURITUS [None]
  - SYSTEMIC LUPUS ERYTHEMATOSUS RASH [None]
